FAERS Safety Report 6738742-5 (Version None)
Quarter: 2010Q2

REPORT INFORMATION
  Report Type: 
  Country: None (occurrence: None)
  Receive Date: 20100524
  Receipt Date: 20100512
  Transmission Date: 20101027
  Serious: Yes (Other)
  Sender: FDA-Public Use
  Company Number: US-PFIZER INC-2010060151

PATIENT
  Sex: Female
  Weight: 60 kg

DRUGS (2)
  1. TIKOSYN [Suspect]
     Indication: ATRIAL FIBRILLATION
     Dosage: 125 UG, 2X/DAY
     Route: 048
     Dates: start: 20081001
  2. WELCHOL [Interacting]
     Indication: HYPERLIPIDAEMIA
     Dosage: 1875 MG, 2X/DAY
     Route: 048
     Dates: start: 20100301

REACTIONS (2)
  - DRUG INTERACTION [None]
  - LONG QT SYNDROME [None]
